FAERS Safety Report 16928142 (Version 1)
Quarter: 2019Q4

REPORT INFORMATION
  Report Type: Spontaneous
  Country: ES (occurrence: ES)
  Receive Date: 20191017
  Receipt Date: 20191017
  Transmission Date: 20200122
  Serious: Yes (Other)
  Sender: FDA-Public Use
  Company Number: ES-CELLTRION INC.-2019ES023935

PATIENT

DRUGS (9)
  1. IMUREL [Suspect]
     Active Substance: AZATHIOPRINE SODIUM
     Indication: CROHN^S DISEASE
     Dosage: 150 MG, UNK
     Route: 048
     Dates: start: 20050916
  2. INFLIXIMAB (UNKNOWN) [Suspect]
     Active Substance: INFLIXIMAB
     Indication: ANORECTAL DISORDER
  3. IMUREL [Suspect]
     Active Substance: AZATHIOPRINE SODIUM
     Indication: ANAL FISTULA
     Dosage: UNK
  4. INFLIXIMAB (UNKNOWN) [Suspect]
     Active Substance: INFLIXIMAB
     Indication: CROHN^S DISEASE
     Dosage: UNK
     Route: 065
  5. AZATHIOPRINE. [Concomitant]
     Active Substance: AZATHIOPRINE
     Dosage: UNK
  6. INFLIXIMAB (UNKNOWN) [Suspect]
     Active Substance: INFLIXIMAB
     Indication: ANAL ABSCESS
     Dosage: UNK
     Route: 065
  7. IMUREL [Suspect]
     Active Substance: AZATHIOPRINE SODIUM
     Indication: ANAL ABSCESS
     Dosage: UNK
  8. MESALAZINA [Concomitant]
     Active Substance: MESALAMINE
     Dosage: 2 G, Q24H
     Route: 048
  9. INFLIXIMAB (UNKNOWN) [Suspect]
     Active Substance: INFLIXIMAB
     Indication: ANAL FISTULA
     Dosage: UNK
     Route: 065

REACTIONS (5)
  - Hypersensitivity [Unknown]
  - Gastrointestinal toxicity [Unknown]
  - Nausea [Unknown]
  - Abdominal pain upper [Unknown]
  - Drug hypersensitivity [Unknown]

NARRATIVE: CASE EVENT DATE: 20050909
